FAERS Safety Report 8889428 (Version 1)
Quarter: 2012Q4

REPORT INFORMATION
  Report Type: Spontaneous
  Country: US (occurrence: None)
  Receive Date: 20121102
  Receipt Date: 20121102
  Transmission Date: 20130627
  Serious: Yes (Life-Threatening, Hospitalization)
  Sender: FDA-Public Use
  Company Number: None

PATIENT
  Age: 70 Year
  Sex: Male
  Weight: 61 kg

DRUGS (1)
  1. GADOLINIUM [Suspect]
     Indication: MRI
     Route: 042
     Dates: start: 20120703, end: 20120703

REACTIONS (1)
  - Respiratory distress [None]
